FAERS Safety Report 15740056 (Version 3)
Quarter: 2020Q3

REPORT INFORMATION
  Report Type: Spontaneous
  Country: US (occurrence: US)
  Receive Date: 20181219
  Receipt Date: 20200828
  Transmission Date: 20201102
  Serious: Yes (Other)
  Sender: FDA-Public Use
  Company Number: US-SA-2018SA343332

PATIENT

DRUGS (6)
  1. DOCETAXEL. [Suspect]
     Active Substance: DOCETAXEL
     Indication: BREAST CANCER FEMALE
     Dosage: UNK UNK, Q3W
     Dates: start: 20120416, end: 20120416
  2. DOCETAXEL. [Suspect]
     Active Substance: DOCETAXEL
     Dosage: UNK UNK, Q3W
     Dates: start: 20120803, end: 20120803
  3. ANASTROZOLE. [Concomitant]
     Active Substance: ANASTROZOLE
  4. HEXALEN [ALTRETAMINE] [Concomitant]
     Indication: BREAST CANCER FEMALE
  5. CYTOXAN [Concomitant]
     Active Substance: CYCLOPHOSPHAMIDE
     Indication: BREAST CANCER
  6. ACTINOMYCIN C [Concomitant]
     Active Substance: CACTINOMYCIN
     Indication: BREAST CANCER FEMALE

REACTIONS (3)
  - Emotional distress [Unknown]
  - Alopecia [Unknown]
  - Psychological trauma [Unknown]
